FAERS Safety Report 4958233-1 (Version None)
Quarter: 2006Q1

REPORT INFORMATION
  Report Type: 
  Country: None (occurrence: None)
  Receive Date: 20060330
  Receipt Date: 20060328
  Transmission Date: 20060701
  Serious: Yes (Other)
  Sender: FDA-Public Use
  Company Number: US-GLAXOSMITHKLINE-A0599345A

PATIENT
  Sex: Female

DRUGS (5)
  1. PAROXETINE HCL [Suspect]
     Indication: PANIC DISORDER
     Dosage: 60MG PER DAY
     Route: 048
  2. WELLBUTRIN XL [Suspect]
     Indication: DEPRESSION
     Dosage: 150MG PER DAY
     Route: 048
     Dates: start: 20060301
  3. CYMBALTA [Concomitant]
     Indication: DEPRESSION
     Dates: start: 20051201
  4. XANAX [Concomitant]
  5. LIPITOR [Concomitant]

REACTIONS (2)
  - HEADACHE [None]
  - SUICIDAL IDEATION [None]
